FAERS Safety Report 8667461 (Version 2)
Quarter: 2012Q4

REPORT INFORMATION
  Report Type: 
  Country: US (occurrence: US)
  Receive Date: 20120717
  Receipt Date: 20121105
  Transmission Date: 20130627
  Serious: Yes (Hospitalization, Other)
  Sender: FDA-Public Use
  Company Number: US-BAYER-2012-070521

PATIENT
  Age: 21 Year
  Sex: Female
  Weight: 97.51 kg

DRUGS (13)
  1. YASMIN [Suspect]
     Indication: MENSTRUAL IRREGULARITY
     Dosage: UNK
     Dates: start: 200304, end: 200808
  2. YASMIN [Suspect]
     Indication: MENSTRUAL IRREGULARITY
     Dosage: UNK
     Dates: end: 200810
  3. OCELLA [Suspect]
     Indication: IRREGULAR MENSTRUATION
     Dosage: UNK
     Dates: start: 200811, end: 200903
  4. OCELLA [Suspect]
     Indication: IRREGULAR MENSTRUATION
     Dosage: UNK
     Dates: end: 201003
  5. VITAMIN C [Concomitant]
     Dosage: UNK
     Dates: start: 2004, end: 2008
  6. IBUPROFEN [Concomitant]
     Dosage: PRN
  7. ZOLPIDEM [Concomitant]
  8. WELLBUTRIN [Concomitant]
  9. SERTRALINE [Concomitant]
  10. AMPHETAMINE SALTS [Concomitant]
  11. CLOMIPRAMINE [Concomitant]
  12. ZOLOFT [Concomitant]
  13. ADDERALL [Concomitant]

REACTIONS (8)
  - Cholelithiasis [None]
  - Cholecystitis chronic [None]
  - Injury [None]
  - Pain [None]
  - Fear of disease [None]
  - Pain [None]
  - Emotional distress [None]
  - Anhedonia [None]
